FAERS Safety Report 17139220 (Version 1)
Quarter: 2019Q4

REPORT INFORMATION
  Report Type: Spontaneous
  Country: US (occurrence: US)
  Receive Date: 20191210
  Receipt Date: 20191210
  Transmission Date: 20200122
  Serious: No
  Sender: FDA-Public Use
  Company Number: None

PATIENT
  Age: 69 Month
  Sex: Female
  Weight: 74.25 kg

DRUGS (14)
  1. C PAP [Concomitant]
  2. POTASSIUM [Concomitant]
     Active Substance: POTASSIUM
  3. CLA2500 [Concomitant]
  4. COQ 10 [Concomitant]
     Active Substance: UBIDECARENONE
  5. LIOTHYRONINE [Concomitant]
     Active Substance: LIOTHYRONINE
  6. EVENITY [Suspect]
     Active Substance: ROMOSOZUMAB-AQQG
     Indication: OSTEOPOROSIS
     Dosage: ?          QUANTITY:2 INJECTION(S);OTHER FREQUENCY:MONTHLY;?
     Route: 058
     Dates: start: 20191014
  7. SERTRALINE [Concomitant]
     Active Substance: SERTRALINE HYDROCHLORIDE
  8. FISH OIL [Concomitant]
     Active Substance: FISH OIL
  9. HYGROTON [Concomitant]
     Active Substance: CHLORTHALIDONE
  10. SIMVASTATIN. [Concomitant]
     Active Substance: SIMVASTATIN
  11. VITAMIN D3 [Concomitant]
     Active Substance: CHOLECALCIFEROL
  12. MAGNESIUM [Concomitant]
     Active Substance: MAGNESIUM
  13. PROBIOTIC [Concomitant]
     Active Substance: PROBIOTICS NOS
  14. SYNTHROID [Concomitant]
     Active Substance: LEVOTHYROXINE SODIUM

REACTIONS (2)
  - Temporomandibular joint syndrome [None]
  - Headache [None]

NARRATIVE: CASE EVENT DATE: 20191209
